FAERS Safety Report 8113657-9 (Version None)
Quarter: 2012Q1

REPORT INFORMATION
  Report Type: 
  Country: None (occurrence: None)
  Receive Date: 20120131
  Receipt Date: 20100301
  Transmission Date: 20120608
  Serious: Yes (Hospitalization)
  Sender: FDA-Public Use
  Company Number: 2010001146

PATIENT
  Age: 36 Year
  Sex: Female

DRUGS (1)
  1. ERYMAX [Suspect]
     Indication: ACNE
     Dosage: 500 MG (250 MG, 2 IN 1 D)
     Route: 048

REACTIONS (3)
  - RECTAL HAEMORRHAGE [None]
  - DIARRHOEA [None]
  - ABDOMINAL PAIN [None]
